FAERS Safety Report 10060558 (Version 1)
Quarter: 2014Q2

REPORT INFORMATION
  Report Type: Spontaneous
  Country: RU (occurrence: RU)
  Receive Date: 20140404
  Receipt Date: 20140404
  Transmission Date: 20141212
  Serious: Yes (Life-Threatening)
  Sender: FDA-Public Use
  Company Number: RU-BAYER-2014-046121

PATIENT
  Age: 76 Year
  Sex: Female

DRUGS (3)
  1. ASPIRIN [Suspect]
     Route: 048
  2. SIMVASTATIN [Suspect]
  3. ENALAPRIL [Suspect]
     Route: 048

REACTIONS (1)
  - Oedema [Recovering/Resolving]
